FAERS Safety Report 19420814 (Version 1)
Quarter: 2021Q2

REPORT INFORMATION
  Report Type: Spontaneous
  Country: GB (occurrence: GB)
  Receive Date: 20210616
  Receipt Date: 20210616
  Transmission Date: 20210717
  Serious: Yes (Other)
  Sender: FDA-Public Use
  Company Number: GB-NOVOPROD-819239

PATIENT
  Age: 53 Year
  Sex: Female
  Weight: 157 kg

DRUGS (1)
  1. VICTOZA [Suspect]
     Active Substance: LIRAGLUTIDE
     Indication: DIABETES MELLITUS
     Dosage: 6 ML
     Route: 030
     Dates: start: 20210605

REACTIONS (6)
  - Diarrhoea [Not Recovered/Not Resolved]
  - Incorrect dose administered [Unknown]
  - Illness [Not Recovered/Not Resolved]
  - Abdominal pain [Not Recovered/Not Resolved]
  - Thirst [Unknown]
  - Incorrect route of product administration [Unknown]

NARRATIVE: CASE EVENT DATE: 20210605
